FAERS Safety Report 21896004 (Version 1)
Quarter: 2023Q1

REPORT INFORMATION
  Report Type: Other
  Country: CN (occurrence: None)
  Receive Date: 20230123
  Receipt Date: 20230123
  Transmission Date: 20230417
  Serious: Yes (Other)
  Sender: FDA-Public Use
  Company Number: CN-ROCHE-3269460

PATIENT

DRUGS (6)
  1. BEVACIZUMAB [Suspect]
     Active Substance: BEVACIZUMAB
     Indication: Non-small cell lung cancer
     Dosage: BEVACIZUMAB WAS INTRAVENOUSLY DRIPPED OVER 90 MINUTES, AND THEN EACH INFUSION TIME WAS ABOUT 30-60 M
     Route: 041
  2. PEMETREXED [Suspect]
     Active Substance: PEMETREXED
     Indication: Non-small cell lung cancer
     Dosage: INTRAVENOUS DRIP TIME OF MORE THAN 10 MINUTES.
     Route: 041
  3. CARBOPLATIN [Suspect]
     Active Substance: CARBOPLATIN
     Indication: Non-small cell lung cancer
     Dosage: INTRAVENOUS DRIP OF 250ML OF 5% GLUCOSE SOLUTION AND CARBOPLATIN AUCC6 MIXTURE, INTRAVENOUS DRIP TIM
     Route: 041
  4. FOLIC ACID [Concomitant]
     Active Substance: FOLIC ACID
     Dosage: DURING THE COURSE OF TREATMENT, FOLATE WAS GIVEN 7 DAYS BEFORE THE APPLICATION OF PEMETREXED, AND ST
  5. VITAMIN B12 [Concomitant]
     Active Substance: CYANOCOBALAMIN
     Dosage: INTRAMUSCULAR INJECTION OF VITAMIN B12 WAS GIVEN 7 DAYS BEFORE, ONCE EVERY 9 WEEKS.
     Route: 030
  6. DEXAMETHASONE [Concomitant]
     Active Substance: DEXAMETHASONE
     Route: 048

REACTIONS (1)
  - Granulocytopenia [Unknown]
